FAERS Safety Report 18649425 (Version 2)
Quarter: 2021Q1

REPORT INFORMATION
  Report Type: Spontaneous
  Country: NL (occurrence: NL)
  Receive Date: 20201222
  Receipt Date: 20210112
  Transmission Date: 20210419
  Serious: Yes (Other)
  Sender: FDA-Public Use
  Company Number: NL-TEVA-2020-NL-1859826

PATIENT
  Sex: Male
  Weight: 108 kg

DRUGS (2)
  1. FINASTERIDE TABLET 5MG / BRAND NAME NOT SPECIFIED [Suspect]
     Active Substance: FINASTERIDE
     Indication: PRODUCT USED FOR UNKNOWN INDICATION
     Dosage: 5 MILLIGRAM DAILY;
     Dates: start: 201801, end: 20201103
  2. TAMSULOSINE TABLET MGA 0,4MG / BRAND NAME NOT SPECIFIED [Concomitant]
     Active Substance: TAMSULOSIN HYDROCHLORIDE
     Dosage: 1 DOSAGE FORMS DAILY; THERAPY START DATE AND END DATE : ASKU

REACTIONS (4)
  - Depressed mood [Recovering/Resolving]
  - Loss of libido [Recovering/Resolving]
  - Suicide attempt [Recovering/Resolving]
  - Peyronie^s disease [Recovering/Resolving]
